FAERS Safety Report 8917356 (Version 1)
Quarter: 2012Q4

REPORT INFORMATION
  Report Type: 
  Country: US (occurrence: US)
  Receive Date: 20121120
  Receipt Date: 20121120
  Transmission Date: 20130627
  Serious: No
  Sender: FDA-Public Use
  Company Number: US-B.I. PHARMACEUTICALS,INC./RIDGEFIELD-2012-BI-00620BP

PATIENT
  Sex: Male
  Weight: 86.18 kg

DRUGS (7)
  1. FLOMAX CAPSULES [Suspect]
     Indication: DYSURIA
     Dosage: 0.4 mg
  2. FLOMAX CAPSULES [Suspect]
     Indication: PROSTATOMEGALY
  3. LASIX [Suspect]
     Indication: FLUID RETENTION
     Dosage: 40 mg
     Route: 048
     Dates: start: 2011
  4. METFORMIN [Concomitant]
     Indication: DIABETES MELLITUS
     Dosage: 1700 mg
  5. GABAPENTIN [Concomitant]
     Indication: SENSORY LOSS
     Dosage: 300 mg
  6. NIASPAN [Concomitant]
     Indication: BLOOD CHOLESTEROL ABNORMAL
     Dosage: 500 mg
  7. PLAVIX [Concomitant]
     Indication: ANTICOAGULANT THERAPY
     Dosage: 75 mg

REACTIONS (4)
  - Hypertonic bladder [Unknown]
  - Dysuria [Not Recovered/Not Resolved]
  - Discomfort [Unknown]
  - Burning sensation [Unknown]
